FAERS Safety Report 8592922-5 (Version None)
Quarter: 2012Q3

REPORT INFORMATION
  Report Type: 
  Country: None (occurrence: None)
  Receive Date: 20120814
  Receipt Date: 20120705
  Transmission Date: 20120928
  Serious: Yes (Hospitalization)
  Sender: FDA-Public Use
  Company Number: JP-009507513-1208JPN005656

PATIENT

DRUGS (6)
  1. PEG-INTRON [Suspect]
     Indication: HEPATITIS C
     Dosage: 1.7MCG/KG/WEEK
     Route: 058
     Dates: start: 20120612, end: 20120618
  2. REBETOL [Suspect]
     Route: 048
     Dates: start: 20120625
  3. TELAVIC [Suspect]
     Indication: HEPATITIS C
     Route: 048
     Dates: start: 20120612, end: 20120618
  4. PEG-INTRON [Suspect]
     Dosage: 1.27MCG/KG/WEEK
     Route: 058
     Dates: start: 20120625
  5. REBETOL [Suspect]
     Indication: HEPATITIS C
     Route: 048
     Dates: start: 20120612, end: 20120618
  6. TELAVIC [Suspect]
     Route: 048
     Dates: start: 20120625

REACTIONS (2)
  - PLATELET COUNT DECREASED [None]
  - RASH [None]
